FAERS Safety Report 20623737 (Version 1)
Quarter: 2022Q1

REPORT INFORMATION
  Report Type: Spontaneous
  Country: AU (occurrence: AU)
  Receive Date: 20220322
  Receipt Date: 20220322
  Transmission Date: 20220424
  Serious: Yes (Other)
  Sender: FDA-Public Use
  Company Number: AU-009507513-2203AUS004821

PATIENT
  Age: 59 Year
  Sex: Male

DRUGS (11)
  1. POSACONAZOLE [Suspect]
     Active Substance: POSACONAZOLE
     Indication: Chronic graft versus host disease
     Dosage: INTERVAL: 1 DAY , ROUTE OF ADMINISTRATION: INFORMATION NOT PROVIDED BY SPONSOR
  2. POSACONAZOLE [Suspect]
     Active Substance: POSACONAZOLE
     Dosage: DOSE: 300 MILLIGRAM , ROUTE OF ADMINISTRATION: INFORMATION NOT PROVIDED BY SPONSOR
  3. POSACONAZOLE [Suspect]
     Active Substance: POSACONAZOLE
     Dosage: DOSE: 300 MILLIGRAM , ROUTE OF ADMINISTRATION: INFORMATION NOT PROVIDED BY SPONSOR
  4. POSACONAZOLE [Suspect]
     Active Substance: POSACONAZOLE
     Dosage: DOSE: 300 MILLIGRAM , ROUTE OF ADMINISTRATION: INFORMATION NOT PROVIDED BY SPONSOR
  5. MYCOPHENOLATE MOFETIL [Suspect]
     Active Substance: MYCOPHENOLATE MOFETIL
     Indication: Chronic graft versus host disease
     Dosage: INTERVAL: 1 DAY , ROUTE OF ADMINISTRATION: INFORMATION NOT PROVIDED BY SPONSOR
  6. MYCOPHENOLATE MOFETIL [Suspect]
     Active Substance: MYCOPHENOLATE MOFETIL
     Dosage: UNK
     Route: 048
     Dates: start: 2018
  7. CYCLOSPORINE [Suspect]
     Active Substance: CYCLOSPORINE
     Indication: Chronic graft versus host disease
     Dosage: INTERVAL: 1 DAY , ROUTE OF ADMINISTRATION: INFORMATION NOT PROVIDED BY SPONSOR
  8. CYCLOSPORINE [Suspect]
     Active Substance: CYCLOSPORINE
     Dosage: UNK
     Route: 048
     Dates: start: 2017
  9. CYCLOSPORINE [Suspect]
     Active Substance: CYCLOSPORINE
     Dosage: UNK
     Route: 048
     Dates: start: 2020
  10. PREDNISOLONE [Suspect]
     Active Substance: PREDNISOLONE
     Indication: Chronic graft versus host disease
     Dosage: INTERVAL: 1 DAY , ROUTE OF ADMINISTRATION: INFORMATION NOT PROVIDED BY SPONSOR
  11. IBRUTINIB [Suspect]
     Active Substance: IBRUTINIB
     Indication: Chronic graft versus host disease
     Dosage: INTERVAL: 1 DAY , ROUTE OF ADMINISTRATION: INFORMATION NOT PROVIDED BY SPONSOR

REACTIONS (15)
  - Cataract [Unknown]
  - Chronic graft versus host disease [Unknown]
  - Chronic graft versus host disease in eye [Unknown]
  - Chronic graft versus host disease in liver [Unknown]
  - Chronic graft versus host disease in skin [Unknown]
  - Condition aggravated [Unknown]
  - Glaucoma [Recovering/Resolving]
  - Haemorrhage [Unknown]
  - Mobility decreased [Unknown]
  - Myositis [Recovering/Resolving]
  - Osteoporosis [Recovering/Resolving]
  - Pain [Unknown]
  - Tendonitis [Unknown]
  - Toxicity to various agents [Recovering/Resolving]
  - Vision blurred [Unknown]

NARRATIVE: CASE EVENT DATE: 20170101
